FAERS Safety Report 24544890 (Version 1)
Quarter: 2024Q4

REPORT INFORMATION
  Report Type: Spontaneous
  Country: US (occurrence: None)
  Receive Date: 20241023
  Receipt Date: 20241023
  Transmission Date: 20250115
  Serious: Yes (Other)
  Sender: Public
  Company Number: None

PATIENT
  Age: 63 Year
  Sex: Female
  Weight: 63 kg

DRUGS (23)
  1. AZELAIC ACID [Suspect]
     Active Substance: AZELAIC ACID
     Indication: Rosacea
     Dosage: OTHER QUANTITY : 8 GRAMS;?FREQUENCY : TWICE A DAY;?
     Route: 061
     Dates: start: 20241016, end: 20241019
  2. TESTOSTERONE [Concomitant]
     Active Substance: TESTOSTERONE
  3. ESTRADIOL [Concomitant]
     Active Substance: ESTRADIOL
  4. SERTRALINE [Concomitant]
     Active Substance: SERTRALINE HYDROCHLORIDE
  5. VITAMIN B6 [Concomitant]
     Active Substance: PYRIDOXINE HYDROCHLORIDE
  6. FOLATE [Concomitant]
  7. B12 [Concomitant]
  8. NAC [Concomitant]
  9. PRASTERONE [Concomitant]
     Active Substance: PRASTERONE
  10. MAGNESIUM [Concomitant]
     Active Substance: MAGNESIUM
  11. VITAMIN D3 [Concomitant]
     Active Substance: CHOLECALCIFEROL
  12. v K2 [Concomitant]
  13. VITAMIN C [Concomitant]
     Active Substance: ASCORBIC ACID
  14. Vit A [Concomitant]
  15. VITAMIN E [Concomitant]
     Active Substance: .ALPHA.-TOCOPHEROL
  16. SELENIUM [Concomitant]
     Active Substance: SELENIUM
  17. ZINC [Concomitant]
     Active Substance: ZINC
  18. Akkermansia [Concomitant]
  19. CALCIUM\VITAMIN D [Concomitant]
     Active Substance: CALCIUM\VITAMIN D
  20. Glucarate [Concomitant]
  21. MELATONIN [Concomitant]
     Active Substance: MELATONIN
  22. ASPIRIN [Concomitant]
     Active Substance: ASPIRIN
  23. TAURINE [Concomitant]
     Active Substance: TAURINE

REACTIONS (4)
  - Vertigo [None]
  - Syncope [None]
  - Dizziness [None]
  - Insomnia [None]

NARRATIVE: CASE EVENT DATE: 20241018
